FAERS Safety Report 8860584 (Version 2)
Quarter: 2012Q4

REPORT INFORMATION
  Report Type: 
  Country: MX (occurrence: MX)
  Receive Date: 20121025
  Receipt Date: 20121219
  Transmission Date: 20130627
  Serious: Yes (Other)
  Sender: FDA-Public Use
  Company Number: MX-ELI_LILLY_AND_COMPANY-MX201208006843

PATIENT
  Age: 67 Year
  Sex: Female

DRUGS (5)
  1. HUMALOG 25% LISPRO, 75% NPL [Suspect]
     Dosage: 16 IU, each morning
     Dates: start: 201206
  2. HUMALOG 25% LISPRO, 75% NPL [Suspect]
     Dosage: 4 IU, each evening
     Dates: start: 201206
  3. HUMALOG 25% LISPRO, 75% NPL [Suspect]
     Dosage: 6 IU, each evening
  4. HUMALOG 25% LISPRO, 75% NPL [Suspect]
     Dosage: UNK, unknown
  5. TAFIL [Concomitant]

REACTIONS (4)
  - Upper limb fracture [Recovering/Resolving]
  - Fall [Recovered/Resolved]
  - Blood glucose increased [Recovered/Resolved]
  - Hypothyroidism [Not Recovered/Not Resolved]
